FAERS Safety Report 11806045 (Version 2)
Quarter: 2016Q1

REPORT INFORMATION
  Report Type: Report from Study
  Country: PL (occurrence: PL)
  Receive Date: 20151207
  Receipt Date: 20160105
  Transmission Date: 20160525
  Serious: Yes (Death, Hospitalization, Other)
  Sender: FDA-Public Use
  Company Number: PHHY2015PL157517

PATIENT
  Age: 62 Year
  Sex: Male

DRUGS (2)
  1. EVEROLIMUS [Suspect]
     Active Substance: EVEROLIMUS
     Indication: RENAL CANCER
     Dosage: 10 MG, QD
     Route: 065
     Dates: start: 201408, end: 201504
  2. EVEROLIMUS [Suspect]
     Active Substance: EVEROLIMUS
     Dosage: 5 MG, QD
     Route: 065
     Dates: start: 20150504

REACTIONS (10)
  - Oedema peripheral [Unknown]
  - Death [Fatal]
  - Malignant neoplasm progression [Unknown]
  - Depression [Unknown]
  - Asthenia [Unknown]
  - Pneumonia [Unknown]
  - Oedema genital [Unknown]
  - Cerebral ischaemia [Recovering/Resolving]
  - Pain [Unknown]
  - Headache [Unknown]

NARRATIVE: CASE EVENT DATE: 201411
